FAERS Safety Report 7971424-0 (Version None)
Quarter: 2011Q4

REPORT INFORMATION
  Report Type: 
  Country: None (occurrence: None)
  Receive Date: 20111123
  Receipt Date: 20110830
  Transmission Date: 20120403
  Serious: Yes (Other)
  Sender: FDA-Public Use
  Company Number: 1000023255

PATIENT
  Age: 59 Year
  Sex: Male

DRUGS (7)
  1. CRESTOR (ROSULVASTATIN CALCIUM) [Concomitant]
  2. DALIRESP [Suspect]
     Indication: CHRONIC OBSTRUCTIVE PULMONARY DISEASE
     Dosage: 500 MCG EVERY OTHER DAY (500 MCG, EVERY OTHER DAY), ORAL
     Route: 048
     Dates: start: 20110826
  3. LISINOPRIL [Concomitant]
  4. FISH OIL [Concomitant]
  5. SPIRIVA [Concomitant]
  6. DALIRESP [Suspect]
     Indication: CHRONIC OBSTRUCTIVE PULMONARY DISEASE
     Dosage: 500 MCG (500 MCG, 1 IN 1 D), ORAL
     Route: 048
     Dates: start: 20110701
  7. ADVAIR DISKUS 100/50 [Concomitant]

REACTIONS (1)
  - SUICIDAL IDEATION [None]
